FAERS Safety Report 15353575 (Version 1)
Quarter: 2018Q3

REPORT INFORMATION
  Report Type: Spontaneous
  Country: US (occurrence: US)
  Receive Date: 20180905
  Receipt Date: 20180905
  Transmission Date: 20181010
  Serious: No
  Sender: FDA-Public Use
  Company Number: US-LYNE LABORATORIES INC.-2054657

PATIENT
  Age: 9 Year
  Sex: Male
  Weight: 33.64 kg

DRUGS (4)
  1. PROZAC [Concomitant]
     Active Substance: FLUOXETINE HYDROCHLORIDE
  2. LEVOCARNITINE. [Suspect]
     Active Substance: LEVOCARNITINE
     Indication: CARNITINE DEFICIENCY
     Route: 048
     Dates: start: 20180611, end: 20180619
  3. L DOPA [Concomitant]
     Active Substance: LEVODOPA
  4. UNSPECIFIED SUPPLEMENTS [Concomitant]

REACTIONS (3)
  - Drug ineffective [Recovered/Resolved]
  - Fatigue [Recovered/Resolved]
  - Somnolence [Recovered/Resolved]
